FAERS Safety Report 6590190-7 (Version None)
Quarter: 2010Q1

REPORT INFORMATION
  Report Type: 
  Country: None (occurrence: None)
  Receive Date: 20100205
  Receipt Date: 20100125
  Transmission Date: 20100710
  Serious: Yes (Other)
  Sender: FDA-Public Use
  Company Number: 237912K09USA

PATIENT
  Age: 46 Year
  Sex: Female

DRUGS (7)
  1. REBIF [Suspect]
     Indication: MULTIPLE SCLEROSIS
     Dosage: 3 IN 1 WEEKS, SUBCUTANEOUS; 44 MCG, 3 IN 1 WEEKS, SUBCUTANEOUS
     Route: 058
     Dates: start: 20090101
  2. REBIF [Suspect]
     Indication: MULTIPLE SCLEROSIS
     Dosage: 3 IN 1 WEEKS, SUBCUTANEOUS; 44 MCG, 3 IN 1 WEEKS, SUBCUTANEOUS
     Route: 058
     Dates: start: 20090610
  3. PROZAC [Concomitant]
  4. OMEPRAZOLE [Concomitant]
  5. SENICAR (OLMESARTAN MEDOXOMIL) [Concomitant]
  6. IRON PILLS (IRON PREPARATIONS) [Concomitant]
  7. PRAVASTATIN [Concomitant]

REACTIONS (2)
  - METRORRHAGIA [None]
  - UTERINE LEIOMYOMA [None]
